FAERS Safety Report 8588601 (Version 5)
Quarter: 2013Q4

REPORT INFORMATION
  Report Type: Report from Study
  Country: ES (occurrence: ES)
  Receive Date: 20120531
  Receipt Date: 20131010
  Transmission Date: 20140711
  Serious: Yes (Life-Threatening, Hospitalization, Disabling, Other)
  Sender: FDA-Public Use
  Company Number: ES-VIIV HEALTHCARE LIMITED-B0804707A

PATIENT
  Age: 46 Year
  Sex: Female
  Weight: 68 kg

DRUGS (7)
  1. MARAVIROC [Suspect]
     Indication: HIV INFECTION
     Dosage: 300MG PER DAY
     Route: 048
     Dates: start: 20080304
  2. ETRAVIRINE [Concomitant]
     Indication: HIV INFECTION
     Dosage: 800MG PER DAY
     Dates: start: 20100224
  3. RITONAVIR [Concomitant]
     Indication: HIV INFECTION
     Dosage: 200MG PER DAY
     Dates: start: 20080103
  4. DARUNAVIR [Concomitant]
     Indication: HIV INFECTION
     Dosage: 1200MG PER DAY
     Dates: start: 20080304
  5. CARVEDILOL [Concomitant]
     Indication: CARDIAC FAILURE CONGESTIVE
  6. OMEPRAZOL [Concomitant]
     Dosage: 40MG PER DAY
  7. LORAZEPAM [Concomitant]

REACTIONS (1)
  - Hodgkin^s disease [Not Recovered/Not Resolved]
